FAERS Safety Report 8595009-0 (Version None)
Quarter: 2012Q3

REPORT INFORMATION
  Report Type: 
  Country: None (occurrence: None)
  Receive Date: 20120815
  Receipt Date: 20120802
  Transmission Date: 20120928
  Serious: Yes (Other)
  Sender: FDA-Public Use
  Company Number: US-MYLANLABS-2012S1015897

PATIENT
  Age: 12 Year
  Sex: Female

DRUGS (1)
  1. AMNESTEEM [Suspect]
     Indication: ACNE CYSTIC
     Route: 048
     Dates: start: 20111013, end: 20120701

REACTIONS (6)
  - DEPRESSION [None]
  - DRY SKIN [None]
  - HEADACHE [None]
  - ABDOMINAL PAIN UPPER [None]
  - SUICIDAL IDEATION [None]
  - LIP DRY [None]
